FAERS Safety Report 8827775 (Version 1)
Quarter: 2012Q4

REPORT INFORMATION
  Report Type: 
  Country: US (occurrence: US)
  Receive Date: 20121005
  Receipt Date: 20121005
  Transmission Date: 20130627
  Serious: No
  Sender: FDA-Public Use
  Company Number: US-ASTRAZENECA-2012SE65262

PATIENT
  Age: 63 Year
  Sex: Female

DRUGS (1)
  1. SYMBICORT PMDI [Suspect]
     Indication: ASTHMA
     Dosage: 160-4.5 BID
     Route: 055

REACTIONS (13)
  - Asthma [Unknown]
  - Dyspnoea [Unknown]
  - Discomfort [Unknown]
  - Chest discomfort [Unknown]
  - Activities of daily living impaired [Unknown]
  - Parosmia [Unknown]
  - Pain [Unknown]
  - Fatigue [Unknown]
  - Hypopnoea [Unknown]
  - Eye pruritus [Unknown]
  - Eyelid oedema [Unknown]
  - Headache [Unknown]
  - Drug dose omission [Unknown]
